FAERS Safety Report 14599705 (Version 1)
Quarter: 2018Q1

REPORT INFORMATION
  Report Type: Spontaneous
  Country: US (occurrence: US)
  Receive Date: 20180305
  Receipt Date: 20180305
  Transmission Date: 20180509
  Serious: Yes (Other)
  Sender: FDA-Public Use
  Company Number: US-TEVA-2018-US-864687

PATIENT
  Age: 50 Year
  Sex: Female

DRUGS (3)
  1. AMIODARONE [Suspect]
     Active Substance: AMIODARONE
     Indication: CARDIAC FAILURE
     Route: 065
  2. SOTALOL. [Concomitant]
     Active Substance: SOTALOL
     Indication: VENTRICULAR TACHYCARDIA
     Route: 065
  3. MEXILETINE [Concomitant]
     Active Substance: MEXILETINE
     Indication: VENTRICULAR TACHYCARDIA
     Route: 065

REACTIONS (1)
  - Pulmonary toxicity [Unknown]
